FAERS Safety Report 5264784-5 (Version None)
Quarter: 2007Q1

REPORT INFORMATION
  Report Type: 
  Country: None (occurrence: None)
  Receive Date: 20061124
  Receipt Date: 20040310
  Transmission Date: 20070707
  Serious: Yes (Hospitalization)
  Sender: FDA-Public Use
  Company Number: 2004UW04601

PATIENT
  Age: 47 Year
  Sex: Male
  Weight: 86 kg

DRUGS (6)
  1. ATENOLOL [Suspect]
     Dosage: 50 MG QD PO
     Route: 048
     Dates: start: 20031108, end: 20031117
  2. ANGIOMAX [Suspect]
     Indication: ANTICOAGULANT THERAPY
     Dosage: 64 MG PU
     Dates: start: 20031030, end: 20031030
  3. ANGIOMAX [Suspect]
     Indication: ANTICOAGULANT THERAPY
     Dosage: 149 MG IV
     Route: 042
     Dates: start: 20031030, end: 20031030
  4. ACCUPRIL [Concomitant]
  5. AMBIEN [Concomitant]
  6. ACETYLSALICYLIC ACID SRT [Concomitant]

REACTIONS (2)
  - DIZZINESS [None]
  - NAUSEA [None]
